FAERS Safety Report 24238269 (Version 1)
Quarter: 2024Q3

REPORT INFORMATION
  Report Type: Spontaneous
  Country: US (occurrence: None)
  Receive Date: 20240821
  Receipt Date: 20240821
  Transmission Date: 20241017
  Serious: Yes (Disabling)
  Sender: Public
  Company Number: None

PATIENT
  Age: 83 Year
  Sex: Female
  Weight: 80.55 kg

DRUGS (10)
  1. LEQVIO [Suspect]
     Active Substance: INCLISIRAN SODIUM
     Indication: Low density lipoprotein increased
     Dosage: OTHER QUANTITY : 1 INJECTION(S);?
     Route: 030
     Dates: start: 20240701
  2. ELIQUIS [Concomitant]
     Active Substance: APIXABAN
  3. DILTIAZEM [Concomitant]
     Active Substance: DILTIAZEM
  4. SYNTHROID [Concomitant]
     Active Substance: LEVOTHYROXINE SODIUM
  5. VITAMIN D [Concomitant]
     Active Substance: VITAMIN D NOS
  6. VITAMIN B12 [Concomitant]
     Active Substance: CYANOCOBALAMIN
  7. ORGANIC CRANBERRY EXTRACT [Concomitant]
  8. ORGANIC OMEGA 3 [Concomitant]
  9. ORGANIC PUMPKIN SEED OIL [Concomitant]
  10. NAPROXEN SALTS [Concomitant]

REACTIONS (1)
  - Arthralgia [None]

NARRATIVE: CASE EVENT DATE: 20240705
